FAERS Safety Report 18599569 (Version 1)
Quarter: 2020Q4

REPORT INFORMATION
  Report Type: Spontaneous
  Country: US (occurrence: US)
  Receive Date: 20201209
  Receipt Date: 20201209
  Transmission Date: 20210114
  Serious: Yes (Hospitalization)
  Sender: FDA-Public Use
  Company Number: None

PATIENT
  Age: 47 Year
  Sex: Female
  Weight: 56.25 kg

DRUGS (9)
  1. FLUDROCORTISONE [Concomitant]
     Active Substance: FLUDROCORTISONE
  2. PREGABALIN. [Suspect]
     Active Substance: PREGABALIN
     Indication: FIBROMYALGIA
     Dosage: ?          QUANTITY:1 CAPSULE(S);?
     Route: 048
  3. VIVANSE [Concomitant]
  4. MARIJUANA [Concomitant]
     Active Substance: CANNABIS SATIVA SUBSP. INDICA TOP
  5. NATURE-THROID [Concomitant]
     Active Substance: THYROID, PORCINE
  6. LIOTHYRONINE [Concomitant]
     Active Substance: LIOTHYRONINE
  7. HYDROCORTISONE. [Concomitant]
     Active Substance: HYDROCORTISONE
  8. DIAZEPAM. [Concomitant]
     Active Substance: DIAZEPAM
  9. SOMA [Concomitant]
     Active Substance: CARISOPRODOL

REACTIONS (9)
  - Aphasia [None]
  - Cognitive disorder [None]
  - Coordination abnormal [None]
  - Product dose omission issue [None]
  - Incontinence [None]
  - Tremor [None]
  - Confusional state [None]
  - Withdrawal syndrome [None]
  - Drug dependence [None]

NARRATIVE: CASE EVENT DATE: 20201207
